FAERS Safety Report 22265577 (Version 1)
Quarter: 2023Q2

REPORT INFORMATION
  Report Type: Spontaneous
  Country: US (occurrence: None)
  Receive Date: 20230426
  Receipt Date: 20230426
  Transmission Date: 20230721
  Serious: Yes (Hospitalization)
  Sender: FDA-Public Use
  Company Number: None

PATIENT
  Age: 82 Year
  Weight: 68.49 kg

DRUGS (31)
  1. LENALIDOMIDE [Suspect]
     Active Substance: LENALIDOMIDE
     Indication: Myelodysplastic syndrome
     Dosage: FREQUENCY : EVERY OTHER DAY;?
     Route: 048
  2. AMITRIPTYLINE [Concomitant]
     Active Substance: AMITRIPTYLINE
  3. ASPIRIN [Concomitant]
     Active Substance: ASPIRIN
  4. ATORVASTATIN [Concomitant]
  5. VITAMIN B12 [Concomitant]
     Active Substance: CYANOCOBALAMIN
  6. CELECOXIB [Concomitant]
     Active Substance: CELECOXIB
  7. CLARITIN [Concomitant]
  8. COMBIVENT [Concomitant]
  9. CYCLOBENZAPRINE [Concomitant]
  10. FOSAMAX [Concomitant]
     Active Substance: ALENDRONATE SODIUM
  11. GABAPENTIN [Concomitant]
  12. IRON [Concomitant]
  13. KLOR-CON [Concomitant]
  14. LEVOFLOXACIN [Concomitant]
  15. LEVOTHYROXINE [Concomitant]
  16. LISINOPRIL [Concomitant]
  17. MAGNESIUM [Concomitant]
  18. MAGOX [Concomitant]
  19. MELOXICAM [Concomitant]
  20. MIRCO GUARD [Concomitant]
  21. PANTROZOLE [Concomitant]
  22. PERCOCET [Concomitant]
     Active Substance: ACETAMINOPHEN\OXYCODONE HYDROCHLORIDE
  23. POTASSIUM CHLORIDER ER [Concomitant]
  24. POTASSIUM CITRATE [Concomitant]
     Active Substance: POTASSIUM CITRATE
  25. SERTRALINE [Concomitant]
  26. SYNTHROID [Concomitant]
  27. TEMAZEPAM [Concomitant]
  28. TRAMADOL [Concomitant]
  29. VITAMIN C [Concomitant]
  30. VITAMIN D [Concomitant]
     Active Substance: VITAMIN D NOS
  31. WARFARIN [Concomitant]
     Active Substance: WARFARIN

REACTIONS (1)
  - Malnutrition [None]
